FAERS Safety Report 7129486-9 (Version None)
Quarter: 2010Q4

REPORT INFORMATION
  Report Type: 
  Country: None (occurrence: None)
  Receive Date: 20101130
  Receipt Date: 20101120
  Transmission Date: 20110411
  Serious: Yes (Disabling, Other)
  Sender: FDA-Public Use
  Company Number: US-SANOFI-AVENTIS-2010SA071348

PATIENT
  Age: 64 Year
  Sex: Female

DRUGS (2)
  1. LANTUS [Suspect]
     Route: 058
  2. OPTICLICK [Suspect]

REACTIONS (8)
  - BLINDNESS UNILATERAL [None]
  - CATARACT [None]
  - DEVICE MALFUNCTION [None]
  - GAIT DISTURBANCE [None]
  - LOCALISED INFECTION [None]
  - TOE AMPUTATION [None]
  - VISUAL IMPAIRMENT [None]
  - VITREOUS FLOATERS [None]
